FAERS Safety Report 16852032 (Version 1)
Quarter: 2019Q3

REPORT INFORMATION
  Report Type: Spontaneous
  Country: JP (occurrence: JP)
  Receive Date: 20190925
  Receipt Date: 20190925
  Transmission Date: 20191005
  Serious: Yes (Other)
  Sender: FDA-Public Use
  Company Number: JP-GILEAD-2019-0430116

PATIENT
  Age: 64 Year
  Sex: Female

DRUGS (6)
  1. TADALAFIL. [Suspect]
     Active Substance: TADALAFIL
     Indication: PULMONARY ARTERIAL HYPERTENSION
     Dosage: UNK
     Route: 065
  2. CYCLOPHOSPHAMIDE IV [Concomitant]
     Indication: MIXED CONNECTIVE TISSUE DISEASE
  3. TADALAFIL. [Suspect]
     Active Substance: TADALAFIL
     Indication: MIXED CONNECTIVE TISSUE DISEASE
  4. CYCLOPHOSPHAMIDE IV [Concomitant]
     Indication: PULMONARY ARTERIAL HYPERTENSION
     Dosage: UNK
     Route: 042
  5. AMBRISENTAN [Suspect]
     Active Substance: AMBRISENTAN
     Indication: PULMONARY ARTERIAL HYPERTENSION
     Dosage: UNK
     Route: 048
  6. AMBRISENTAN [Suspect]
     Active Substance: AMBRISENTAN
     Indication: MIXED CONNECTIVE TISSUE DISEASE

REACTIONS (3)
  - Condition aggravated [Unknown]
  - Respiratory disorder [Unknown]
  - Pulmonary vein occlusion [Unknown]
